FAERS Safety Report 5407229-4 (Version None)
Quarter: 2007Q3

REPORT INFORMATION
  Report Type: 
  Country: None (occurrence: None)
  Receive Date: 20070807
  Receipt Date: 20070802
  Transmission Date: 20080115
  Serious: Yes (Other)
  Sender: FDA-Public Use
  Company Number: A0667874A

PATIENT
  Age: 89 Year
  Sex: Female

DRUGS (3)
  1. ADVAIR DISKUS 100/50 [Suspect]
     Dosage: 1PUFF TWICE PER DAY
     Route: 055
     Dates: start: 20060801
  2. BLOOD PRESSURE MEDICATION [Concomitant]
  3. ARTHRITIS MEDICATION [Concomitant]

REACTIONS (4)
  - CATARACT [None]
  - EYELID OEDEMA [None]
  - LACRIMATION INCREASED [None]
  - VISUAL ACUITY REDUCED [None]
